FAERS Safety Report 23247108 (Version 2)
Quarter: 2024Q1

REPORT INFORMATION
  Report Type: Spontaneous
  Country: US (occurrence: US)
  Receive Date: 20231130
  Receipt Date: 20240205
  Transmission Date: 20240410
  Serious: No
  Sender: FDA-Public Use
  Company Number: US-002147023-NVSC2023US255247

PATIENT
  Sex: Female
  Weight: 64.4 kg

DRUGS (1)
  1. LEQVIO [Suspect]
     Active Substance: INCLISIRAN SODIUM
     Indication: Low density lipoprotein
     Dosage: 284 MG, (INITIAL, 3 MONTHS, THEN EVERY 6 MONTHS)
     Route: 058
     Dates: start: 20230504, end: 20230504

REACTIONS (1)
  - Muscular weakness [Recovering/Resolving]
